FAERS Safety Report 6020003 (Version 2)
Quarter: 2015Q3

REPORT INFORMATION
  Report Type: Spontaneous
  Country: US (occurrence: None)
  Receive Date: 20060327
  Receipt Date: 20150710
  Transmission Date: 20151125
  Serious: Yes (Other)
  Sender: FDA-Public Use
  Company Number: 2006US-01783

PATIENT
  Age: 37 Year
  Sex: Female

DRUGS (5)
  1. HYDROCHLOROTHIAZIDE. [Concomitant]
     Active Substance: HYDROCHLOROTHIAZIDE
  2. NORVASC [Concomitant]
     Active Substance: AMLODIPINE BESYLATE
  3. NORTRIPTYLINE HYDROCHLORIDE. [Concomitant]
     Active Substance: NORTRIPTYLINE HYDROCHLORIDE
  4. PROTONIX [Concomitant]
     Active Substance: PANTOPRAZOLE SODIUM
  5. ISOTRETINOIN [Suspect]
     Active Substance: ISOTRETINOIN
     Route: 048
     Dates: start: 20060107, end: 200602

REACTIONS (10)
  - Physical assault [None]
  - Epistaxis [None]
  - Crying [None]
  - Lip haemorrhage [None]
  - Chapped lips [None]
  - Somnolence [None]
  - Aggression [None]
  - Vomiting [None]
  - Chest pain [None]
  - Rash pruritic [None]

NARRATIVE: CASE EVENT DATE: 200602
